FAERS Safety Report 5493211-8 (Version None)
Quarter: 2007Q4

REPORT INFORMATION
  Report Type: 
  Country: None (occurrence: None)
  Receive Date: 20071023
  Receipt Date: 20071017
  Transmission Date: 20080405
  Serious: Yes (Hospitalization, Disabling, Other)
  Sender: FDA-Public Use
  Company Number: B0488846A

PATIENT
  Age: 38 Year
  Sex: Female
  Weight: 56 kg

DRUGS (3)
  1. KIVEXA [Suspect]
     Indication: HIV INFECTION
     Dosage: 1TAB PER DAY
     Route: 048
     Dates: start: 20061009
  2. LODOZ [Concomitant]
     Indication: HYPERTENSION
     Dosage: 2.5MG PER DAY
     Route: 048
     Dates: start: 20061212, end: 20070907
  3. UNKNOWN ANTIRETROVIRAL TREATMENT [Concomitant]
     Indication: HIV INFECTION
     Route: 065

REACTIONS (2)
  - BLOOD CREATININE INCREASED [None]
  - BREAST NEOPLASM [None]
